FAERS Safety Report 25560183 (Version 1)
Quarter: 2025Q3

REPORT INFORMATION
  Report Type: Spontaneous
  Country: US (occurrence: US)
  Receive Date: 20250715
  Receipt Date: 20250715
  Transmission Date: 20251020
  Serious: No
  Sender: NOVO NORDISK
  Company Number: US-NOVOPROD-959953

PATIENT
  Sex: Male

DRUGS (3)
  1. NOVOLOG MIX 70/30 [Concomitant]
     Active Substance: INSULIN ASPART
     Indication: Type 1 diabetes mellitus
     Route: 058
  2. OZEMPIC [Suspect]
     Active Substance: SEMAGLUTIDE
     Indication: Weight control
     Dates: start: 20241227
  3. OZEMPIC [Suspect]
     Active Substance: SEMAGLUTIDE
     Indication: Type 1 diabetes mellitus
     Dates: end: 202102

REACTIONS (10)
  - Sleep apnoea syndrome [Unknown]
  - Condition aggravated [Unknown]
  - Weight increased [Unknown]
  - Increased appetite [Unknown]
  - Diabetes mellitus inadequate control [Unknown]
  - Product leakage [Unknown]
  - Off label use [Unknown]
  - Off label use [Unknown]
  - Wrong technique in product usage process [Unknown]
  - Device use confusion [Unknown]
